FAERS Safety Report 4846448-2 (Version None)
Quarter: 2005Q4

REPORT INFORMATION
  Report Type: 
  Country: None (occurrence: None)
  Receive Date: 20051201
  Receipt Date: 20051117
  Transmission Date: 20060501
  Serious: Yes (Death, Hospitalization)
  Sender: FDA-Public Use
  Company Number: 12762

PATIENT
  Age: 55 Year
  Sex: Male
  Weight: 59 kg

DRUGS (11)
  1. METHOTREXATE [Suspect]
     Indication: RHEUMATOID ARTHRITIS
     Dosage: 15 MG WEEKLY PO
     Route: 048
     Dates: start: 20041101
  2. KINERET [Suspect]
     Indication: AMYLOIDOSIS
     Dosage: 100 MG QD SC
     Route: 058
     Dates: start: 20050311, end: 20050322
  3. KINERET [Suspect]
     Indication: RHEUMATOID ARTHRITIS
     Dosage: 100 MG QD SC
     Route: 058
     Dates: start: 20050311, end: 20050322
  4. HYDROCORTISONE [Suspect]
     Dosage: 30 MG PO
     Route: 048
  5. CELEBREX [Concomitant]
  6. ATORVASTATIN CALCIUM [Concomitant]
  7. PERINDOPRIL [Concomitant]
  8. WARFARIN SODIUM [Concomitant]
  9. FOLIC ACID [Concomitant]
  10. RANITIDINE [Concomitant]
  11. DICLOFENAC SODIUM [Concomitant]

REACTIONS (15)
  - AMYLOIDOSIS [None]
  - ARM AMPUTATION [None]
  - BLISTER [None]
  - DIARRHOEA [None]
  - GANGRENE [None]
  - HAEMODIALYSIS [None]
  - INTERNATIONAL NORMALISED RATIO INCREASED [None]
  - NECROTISING FASCIITIS [None]
  - OEDEMA PERIPHERAL [None]
  - POOR PERIPHERAL CIRCULATION [None]
  - RENAL FAILURE [None]
  - STREPTOCOCCAL SEPSIS [None]
  - VENOUS THROMBOSIS [None]
  - VOMITING [None]
  - WHITE BLOOD CELL COUNT DECREASED [None]
